FAERS Safety Report 17952904 (Version 1)
Quarter: 2020Q2

REPORT INFORMATION
  Report Type: Spontaneous
  Country: DE (occurrence: DE)
  Receive Date: 20200627
  Receipt Date: 20200627
  Transmission Date: 20200714
  Serious: Yes (Hospitalization)
  Sender: FDA-Public Use
  Company Number: DE-ACCORD-186647

PATIENT
  Age: 73 Year
  Sex: Male

DRUGS (8)
  1. ALLOPURINOL. [Concomitant]
     Active Substance: ALLOPURINOL
     Dosage: 150 MG, 1-0-0-0
  2. OXALIPLATIN. [Suspect]
     Active Substance: OXALIPLATIN
     Indication: PRODUCT USED FOR UNKNOWN INDICATION
     Dosage: NK MG, ACCORDING TO THE SCHEME
  3. RITUXIMAB. [Suspect]
     Active Substance: RITUXIMAB
     Indication: PRODUCT USED FOR UNKNOWN INDICATION
     Dosage: NK MG, ACCORDING TO THE SCHEME
  4. ZOLEDRONIC ACID [Concomitant]
     Active Substance: ZOLEDRONIC ACID
     Dosage: NK MG/1X MONTH, 1-0-0-0
  5. ENOXAPARIN [Concomitant]
     Active Substance: ENOXAPARIN
     Dosage: 40 MG, 1-0-0-0
  6. COTRIM FORTE [Concomitant]
     Active Substance: SULFAMETHOXAZOLE\TRIMETHOPRIM
     Dosage: STRENGTH: 800/160 MG,  800/160 MG /2 DAY, 1-0-0-0
  7. GEMCITABINE/GEMCITABINE HYDROCHLORIDE [Suspect]
     Active Substance: GEMCITABINE\GEMCITABINE HYDROCHLORIDE
     Indication: PRODUCT USED FOR UNKNOWN INDICATION
     Dosage: NK MG, ACCORDING TO THE SCHEME
  8. VIGANTOLETTEN [Suspect]
     Active Substance: CHOLECALCIFEROL
     Indication: PRODUCT USED FOR UNKNOWN INDICATION
     Dosage: 1000 IE, 1-0-0-0, STRENGTH:1000 IU

REACTIONS (3)
  - General physical health deterioration [Unknown]
  - Product administration error [Unknown]
  - Cough [Unknown]
